FAERS Safety Report 13678949 (Version 1)
Quarter: 2017Q2

REPORT INFORMATION
  Report Type: Other
  Country: None (occurrence: US)
  Receive Date: 20170622
  Receipt Date: 20170622
  Transmission Date: 20170830
  Serious: Yes (Other)
  Sender: FDA-Public Use
  Company Number: US-GUTHY-RENKER LLC-2022405

PATIENT
  Age: 30 Year
  Sex: Female

DRUGS (2)
  1. MEANINGFUL BEAUTY CINDY CRAWFORD ANTIOXIDANT SPF 20 UVA/UVB [Suspect]
     Active Substance: AVOBENZONE\OCTINOXATE\OCTISALATE\OXYBENZONE
     Indication: PHOTOSENSITIVITY REACTION
     Route: 061
     Dates: start: 20170301, end: 20170531
  2. THE CUSTOMER HAS PRESCRIBED EPIPEN TO USE WHEN NEEDED. [Concomitant]

REACTIONS (3)
  - Erythema [None]
  - Swelling face [Recovered/Resolved]
  - Urticaria [None]

NARRATIVE: CASE EVENT DATE: 20170531
